FAERS Safety Report 22976673 (Version 4)
Quarter: 2023Q4

REPORT INFORMATION
  Report Type: Spontaneous
  Country: IT (occurrence: IT)
  Receive Date: 20230925
  Receipt Date: 20231024
  Transmission Date: 20240109
  Serious: Yes (Hospitalization, Other)
  Sender: FDA-Public Use
  Company Number: IT-AMGEN-ITASP2023032327

PATIENT
  Age: 49 Year
  Sex: Female

DRUGS (28)
  1. OXALIPLATIN [Suspect]
     Active Substance: OXALIPLATIN
     Indication: Colorectal cancer
     Dosage: 135 MILLIGRAM
     Route: 042
  2. OXALIPLATIN [Suspect]
     Active Substance: OXALIPLATIN
     Indication: Rectal adenocarcinoma
     Dosage: 110 MILLIGRAM  20% REDUCTION
     Route: 042
     Dates: start: 202204
  3. OXALIPLATIN [Suspect]
     Active Substance: OXALIPLATIN
     Dosage: 1620 MILLIGRAM, QD
     Route: 042
     Dates: start: 202106
  4. OXALIPLATIN [Suspect]
     Active Substance: OXALIPLATIN
     Dosage: UNK
     Route: 065
  5. IRINOTECAN [Suspect]
     Active Substance: IRINOTECAN
     Indication: Colorectal cancer
     Dosage: 280 MILLIGRAM (OVER 1 H)
     Route: 042
  6. IRINOTECAN [Suspect]
     Active Substance: IRINOTECAN
     Indication: Rectal adenocarcinoma
     Dosage: UNK
     Route: 042
     Dates: start: 202208
  7. IRINOTECAN [Suspect]
     Active Substance: IRINOTECAN
     Indication: Colorectal cancer metastatic
  8. BEVACIZUMAB [Suspect]
     Active Substance: BEVACIZUMAB
     Indication: Colorectal cancer
     Dosage: 270 MILLIGRAM
     Route: 042
     Dates: start: 2022, end: 2022
  9. BEVACIZUMAB [Suspect]
     Active Substance: BEVACIZUMAB
     Indication: Rectal adenocarcinoma
     Dosage: UNK
     Route: 065
  10. BEVACIZUMAB [Suspect]
     Active Substance: BEVACIZUMAB
     Indication: Colorectal cancer metastatic
  11. FLUOROURACIL [Suspect]
     Active Substance: FLUOROURACIL
     Indication: Colorectal cancer
     Dosage: 600 MILLIGRAM (BOLUS)
     Route: 042
  12. FLUOROURACIL [Suspect]
     Active Substance: FLUOROURACIL
     Indication: Rectal adenocarcinoma
     Dosage: 4000 MILLIGRAM 48-H INFUSION FOR A BSA OF 1,59 M2
     Route: 042
  13. FLUOROURACIL [Suspect]
     Active Substance: FLUOROURACIL
     Indication: Colorectal cancer metastatic
     Dosage: 500 MILLIGRAM ( IV INFUSION FOR
     Route: 042
     Dates: start: 202204
  14. FLUOROURACIL [Suspect]
     Active Substance: FLUOROURACIL
     Dosage: UNK
     Route: 042
     Dates: start: 202208
  15. FLUOROURACIL [Suspect]
     Active Substance: FLUOROURACIL
     Dosage: 600 MILLIGRAM
     Route: 042
     Dates: start: 202106
  16. FLUOROURACIL [Suspect]
     Active Substance: FLUOROURACIL
     Dosage: UNK
     Route: 065
     Dates: start: 2018, end: 2020
  17. FLUOROURACIL [Suspect]
     Active Substance: FLUOROURACIL
     Dosage: 2800 MILLIGRAM
     Route: 042
     Dates: start: 202204
  18. LEUCOVORIN [Suspect]
     Active Substance: LEUCOVORIN\LEUCOVORIN CALCIUM
     Indication: Colorectal cancer
     Dosage: UNK
     Route: 065
  19. LEUCOVORIN [Suspect]
     Active Substance: LEUCOVORIN\LEUCOVORIN CALCIUM
     Indication: Colorectal cancer
     Dosage: UNK
     Route: 065
     Dates: start: 2018, end: 2020
  20. LEUCOVORIN [Suspect]
     Active Substance: LEUCOVORIN\LEUCOVORIN CALCIUM
     Indication: Rectal adenocarcinoma
     Dosage: 300 MILLIGRAM, OVER 2 H
     Route: 042
     Dates: start: 202106
  21. LEUCOVORIN [Suspect]
     Active Substance: LEUCOVORIN\LEUCOVORIN CALCIUM
     Indication: Colorectal cancer metastatic
     Dosage: 300 MILLIGRAM
     Route: 042
     Dates: start: 202204
  22. LEUCOVORIN [Suspect]
     Active Substance: LEUCOVORIN\LEUCOVORIN CALCIUM
     Dosage: UNK
     Route: 042
     Dates: start: 202208
  23. PANITUMUMAB [Suspect]
     Active Substance: PANITUMUMAB
     Indication: Colorectal cancer
     Dosage: 320 MILLIGRAM
     Route: 042
     Dates: start: 202203
  24. PANITUMUMAB [Suspect]
     Active Substance: PANITUMUMAB
     Indication: Rectal adenocarcinoma
     Dosage: 320 MILLIGRAM
     Route: 042
     Dates: start: 202204, end: 2022
  25. PANITUMUMAB [Suspect]
     Active Substance: PANITUMUMAB
     Dosage: 320 MILLIGRAM
     Route: 042
     Dates: start: 202106
  26. PANITUMUMAB [Suspect]
     Active Substance: PANITUMUMAB
     Dosage: UNK
     Route: 065
  27. FOLIC ACID [Suspect]
     Active Substance: FOLIC ACID
     Indication: Rectal adenocarcinoma
     Dosage: UNK
     Route: 065
     Dates: start: 202106
  28. TIPIRACIL HYDROCHLORIDE\TRIFLURIDINE [Concomitant]
     Active Substance: TIPIRACIL HYDROCHLORIDE\TRIFLURIDINE
     Dosage: UNK, QD (110/45 MG)
     Route: 048
     Dates: start: 202209

REACTIONS (7)
  - Thrombocytopenic purpura [Unknown]
  - Thrombocytopenia [Unknown]
  - Colorectal cancer [Unknown]
  - Antinuclear antibody positive [Unknown]
  - Chills [Unknown]
  - Blood immunoglobulin G increased [Unknown]
  - Back pain [Unknown]

NARRATIVE: CASE EVENT DATE: 20220101
